FAERS Safety Report 21771227 (Version 2)
Quarter: 2022Q4

REPORT INFORMATION
  Report Type: Report from Study
  Country: US (occurrence: US)
  Receive Date: 20221223
  Receipt Date: 20221226
  Transmission Date: 20230113
  Serious: No
  Sender: FDA-Public Use
  Company Number: US-002147023-NVSC2022US296326

PATIENT
  Age: 14 Year
  Sex: Male

DRUGS (1)
  1. ILARIS [Suspect]
     Active Substance: CANAKINUMAB
     Indication: Juvenile idiopathic arthritis
     Dosage: 200 MG, EVERY 4 WEEKS
     Route: 058
     Dates: start: 20220411

REACTIONS (6)
  - Illness [Recovered/Resolved]
  - Hypoacusis [Recovered/Resolved]
  - Asthenia [Recovered/Resolved]
  - Wheezing [Recovered/Resolved]
  - Ear discomfort [Recovered/Resolved]
  - Ear pain [Recovered/Resolved]

NARRATIVE: CASE EVENT DATE: 20221205
